FAERS Safety Report 25323889 (Version 1)
Quarter: 2025Q2

REPORT INFORMATION
  Report Type: Spontaneous
  Country: US (occurrence: None)
  Receive Date: 20250515
  Receipt Date: 20250515
  Transmission Date: 20250717
  Serious: No
  Sender: FDA-CTU
  Company Number: None

PATIENT
  Sex: Female

DRUGS (2)
  1. ENBREL [Suspect]
     Active Substance: ETANERCEPT
     Route: 058
     Dates: start: 20250226, end: 20250502
  2. ENBREL [Concomitant]
     Active Substance: ETANERCEPT
     Dates: start: 20250226, end: 20250502

REACTIONS (6)
  - Injection site erythema [None]
  - Injection site bruising [None]
  - Injection site discolouration [None]
  - Injection site rash [None]
  - Injection site pain [None]
  - Fatigue [None]
